FAERS Safety Report 4475451-X (Version None)
Quarter: 2004Q4

REPORT INFORMATION
  Report Type: 
  Country: None (occurrence: None)
  Receive Date: 20041014
  Receipt Date: 20041014
  Transmission Date: 20050328
  Serious: Yes (Life-Threatening, Other)
  Sender: FDA-Public Use
  Company Number: None

PATIENT
  Age: 45 Year
  Sex: Female
  Weight: 74.8435 kg

DRUGS (4)
  1. DEPAKOTE [Suspect]
     Indication: BIPOLAR DISORDER
     Dosage: PO/HOSPITALIZED
     Route: 048
     Dates: start: 20040301
  2. ABILIIFY 10 MG ONE QHS [Suspect]
     Dosage: PO
     Route: 048
  3. TOPAMAX [Suspect]
  4. DALMANE [Suspect]

REACTIONS (2)
  - HEPATIC FAILURE [None]
  - LIVER TRANSPLANT [None]
